FAERS Safety Report 9822985 (Version 2)
Quarter: 2014Q2

REPORT INFORMATION
  Report Type: Spontaneous
  Country: SE (occurrence: SE)
  Receive Date: 20140116
  Receipt Date: 20140414
  Transmission Date: 20141212
  Serious: Yes (Hospitalization)
  Sender: FDA-Public Use
  Company Number: SE-VERTEX PHARMACEUTICALS INC-2014-000200

PATIENT
  Sex: 0

DRUGS (3)
  1. INCIVO [Suspect]
     Indication: PRODUCT USED FOR UNKNOWN INDICATION
     Route: 048
     Dates: start: 201309, end: 20131124
  2. COPEGUS [Concomitant]
     Indication: CHRONIC HEPATITIS C
  3. PEGINTERFERON ALFA-2A [Concomitant]
     Indication: CHRONIC HEPATITIS C

REACTIONS (1)
  - Drug reaction with eosinophilia and systemic symptoms [Unknown]
